FAERS Safety Report 25512944 (Version 1)
Quarter: 2025Q3

REPORT INFORMATION
  Report Type: Spontaneous
  Country: EU (occurrence: EU)
  Receive Date: 20250703
  Receipt Date: 20250703
  Transmission Date: 20251021
  Serious: Yes (Death, Hospitalization, Other)
  Sender: SANDOZ
  Company Number: EU-NOVPHSZ-PHHY2017BE178087

PATIENT
  Age: 27 Year
  Sex: Female

DRUGS (22)
  1. LAPINE T-LYMPHOCYTE IMMUNE GLOBULIN [Suspect]
     Active Substance: LAPINE T-LYMPHOCYTE IMMUNE GLOBULIN
     Indication: Bone marrow conditioning regimen
     Route: 065
  2. BUSULFAN [Suspect]
     Active Substance: BUSULFAN
     Indication: Bone marrow conditioning regimen
     Route: 065
  3. BUSULFAN [Suspect]
     Active Substance: BUSULFAN
     Indication: Bone marrow conditioning regimen
  4. BUSULFAN [Suspect]
     Active Substance: BUSULFAN
     Indication: Bone marrow conditioning regimen
  5. CYCLOPHOSPHAMIDE [Suspect]
     Active Substance: CYCLOPHOSPHAMIDE
     Indication: Bone marrow conditioning regimen
     Route: 065
  6. FLUDARABINE [Suspect]
     Active Substance: FLUDARABINE PHOSPHATE
     Indication: Bone marrow conditioning regimen
     Route: 065
  7. MYCOPHENOLATE MOFETIL [Suspect]
     Active Substance: MYCOPHENOLATE MOFETIL
     Indication: Prophylaxis against graft versus host disease
     Route: 065
  8. MYCOPHENOLIC ACID [Suspect]
     Active Substance: MYCOPHENOLIC ACID
     Indication: Prophylaxis against graft versus host disease
     Route: 065
  9. POSACONAZOLE [Suspect]
     Active Substance: POSACONAZOLE
     Indication: Oral candidiasis
     Route: 065
  10. TACROLIMUS [Suspect]
     Active Substance: TACROLIMUS
     Indication: Prophylaxis against graft versus host disease
     Route: 065
  11. VALGANCICLOVIR [Suspect]
     Active Substance: VALGANCICLOVIR
     Indication: Cytomegalovirus infection reactivation
     Route: 065
  12. CASPOFUNGIN [Concomitant]
     Active Substance: CASPOFUNGIN
     Indication: Product used for unknown indication
     Route: 065
  13. Ceftazidim mip [Concomitant]
     Indication: Product used for unknown indication
     Route: 065
  14. FOSCAVIR [Concomitant]
     Active Substance: FOSCARNET SODIUM
     Route: 065
  15. FOSCAVIR [Concomitant]
     Active Substance: FOSCARNET SODIUM
     Route: 065
  16. FOSCAVIR [Concomitant]
     Active Substance: FOSCARNET SODIUM
     Indication: Bone marrow conditioning regimen
     Route: 065
  17. Immunglobulin [Concomitant]
     Indication: Supportive care
     Dosage: UNK UNK, QW
     Route: 065
  18. METRONIDAZOLE [Concomitant]
     Active Substance: METRONIDAZOLE
     Indication: Product used for unknown indication
     Route: 065
  19. POSACONAZOLE [Concomitant]
     Active Substance: POSACONAZOLE
     Route: 065
  20. POSACONAZOLE [Concomitant]
     Active Substance: POSACONAZOLE
     Indication: Oral candidiasis
     Route: 065
  21. PIPERACILLIN SODIUM\TAZOBACTAM SODIUM [Concomitant]
     Active Substance: PIPERACILLIN SODIUM\TAZOBACTAM SODIUM
     Indication: Product used for unknown indication
     Route: 065
  22. URSODIOL [Concomitant]
     Active Substance: URSODIOL
     Indication: Product used for unknown indication
     Route: 065

REACTIONS (26)
  - Pancytopenia [Fatal]
  - Hepatic cytolysis [Fatal]
  - Oral candidiasis [Fatal]
  - Cholestasis [Fatal]
  - Staphylococcal sepsis [Fatal]
  - Hepatic failure [Fatal]
  - Disseminated intravascular coagulation [Fatal]
  - Cytomegalovirus infection reactivation [Fatal]
  - Hepatic necrosis [Fatal]
  - Haemorrhage [Fatal]
  - Adenovirus infection [Fatal]
  - Liver function test abnormal [Fatal]
  - Infection reactivation [Fatal]
  - Hepatitis [Fatal]
  - Myelosuppression [Fatal]
  - Neutropenia [Fatal]
  - Toxicity to various agents [Fatal]
  - Oedema [Fatal]
  - Rash [Fatal]
  - Pyrexia [Fatal]
  - Venoocclusive liver disease [Fatal]
  - Hepatic pain [Fatal]
  - Diarrhoea [Fatal]
  - Adenoviral hepatitis [Fatal]
  - Ascites [Unknown]
  - Hepatomegaly [Unknown]
